FAERS Safety Report 11161444 (Version 1)
Quarter: 2015Q2

REPORT INFORMATION
  Report Type: Spontaneous
  Country: US (occurrence: US)
  Receive Date: 20150604
  Receipt Date: 20150604
  Transmission Date: 20150821
  Serious: No
  Sender: FDA-Public Use
  Company Number: US-SA-2014SA091954

PATIENT
  Age: 12 Year
  Sex: Male

DRUGS (2)
  1. LANTUS SOLOSTAR [Suspect]
     Active Substance: INSULIN GLARGINE
     Indication: PRODUCT USED FOR UNKNOWN INDICATION
     Dosage: DOSE:13 UNIT(S)
     Route: 065
     Dates: start: 2014
  2. SOLOSTAR [Suspect]
     Active Substance: DEVICE
     Dates: start: 2014

REACTIONS (2)
  - Blood glucose increased [Unknown]
  - Drug dose omission [Unknown]
